FAERS Safety Report 16959251 (Version 1)
Quarter: 2019Q4

REPORT INFORMATION
  Report Type: Report from Study
  Country: US (occurrence: US)
  Receive Date: 20191024
  Receipt Date: 20191024
  Transmission Date: 20200122
  Serious: Yes (Hospitalization)
  Sender: FDA-Public Use
  Company Number: US-TEVA-2019-US-1126049

PATIENT
  Sex: Female
  Weight: 158.8 kg

DRUGS (5)
  1. PEG-L-ASPARAGINASE [Suspect]
     Active Substance: PEGASPARGASE
     Dosage: 2000 IU/M2 IV X 1 DOSE ON DAY 4 (OR DAY 5 OR DAY 6) TOTAL DOSE ADMINISTERED THIS COURSE 3750 UNIT
     Route: 037
     Dates: start: 20190903, end: 20190903
  2. DAUNORUBICIN [Suspect]
     Active Substance: DAUNORUBICIN
     Dosage: ON DAYS 1, 8, 15, AND 22, TOTAL DOSE ADMINISTERED THIS COURSE: 130 MG
     Route: 042
     Dates: start: 20190830, end: 20190905
  3. CYTARABINE. [Suspect]
     Active Substance: CYTARABINE
     Dosage: TOTAL DOSE ADMINISTERED IN THIS COURSE: 70 MG
     Route: 037
     Dates: start: 20190830, end: 20190830
  4. METHOTREXATE SODIUM. [Suspect]
     Active Substance: METHOTREXATE SODIUM
     Dosage: TOTAL DOSE:15 MG. (ADDITION OF 50 MG OF HYDROCORTISONE OPTIONAL PER INSTITUTIONAL GUIDELINES)
     Route: 037
     Dates: start: 20190905, end: 20190905
  5. DEXAMETHASONE. [Suspect]
     Active Substance: DEXAMETHASONE
     Dosage: 5 MG/M2 PO OR IV BID ON DAYS 1-7 AND 15-21 (DO NOT TAPER), ORAL
     Route: 048
     Dates: start: 20190829, end: 20190919

REACTIONS (1)
  - Subarachnoid haemorrhage [Recovering/Resolving]

NARRATIVE: CASE EVENT DATE: 20190912
